FAERS Safety Report 5048924-9 (Version None)
Quarter: 2006Q2

REPORT INFORMATION
  Report Type: 
  Country: None (occurrence: None)
  Receive Date: 20060601
  Receipt Date: 20060302
  Transmission Date: 20061013
  Serious: No
  Sender: FDA-Public Use
  Company Number: US200603000871

PATIENT
  Age: 52 Year
  Sex: Female

DRUGS (5)
  1. CYMBALTA [Suspect]
     Indication: NEURALGIA
     Dosage: 60 MG, DAILY (1/D), ORAL
     Route: 048
     Dates: start: 20060301
  2. WARFARIN SODIUM [Concomitant]
  3. CYTOMEL [Concomitant]
  4. TYLENOL W/ CODEINE [Concomitant]
  5. DURAGESIC-100 [Concomitant]

REACTIONS (9)
  - ABDOMINAL PAIN [None]
  - ACTIVITIES OF DAILY LIVING IMPAIRED [None]
  - ASTHENIA [None]
  - BURNING SENSATION [None]
  - DIARRHOEA [None]
  - HEADACHE [None]
  - MALAISE [None]
  - NAUSEA [None]
  - TREMOR [None]
